FAERS Safety Report 5915379-9 (Version None)
Quarter: 2008Q4

REPORT INFORMATION
  Report Type: 
  Country: None (occurrence: None)
  Receive Date: 20081010
  Receipt Date: 20081002
  Transmission Date: 20090506
  Serious: Yes (Other)
  Sender: FDA-Public Use
  Company Number: US-GILEAD-2008-0017412

PATIENT
  Sex: Female
  Weight: 53.118 kg

DRUGS (10)
  1. LETAIRIS [Suspect]
     Indication: PULMONARY ARTERIAL HYPERTENSION
     Route: 048
     Dates: start: 20080702, end: 20080704
  2. COUMADIN [Concomitant]
  3. LOTREL [Concomitant]
  4. LASIX [Concomitant]
  5. ADVAIR DISKUS 100/50 [Concomitant]
  6. SPIRIVA [Concomitant]
  7. PREDNISONE TAB [Concomitant]
  8. CELLCEPT [Concomitant]
  9. ZOCOR [Concomitant]
  10. PRILOSEC [Concomitant]

REACTIONS (2)
  - NAUSEA [None]
  - VOMITING [None]
